FAERS Safety Report 12564939 (Version 1)
Quarter: 2016Q3

REPORT INFORMATION
  Report Type: Spontaneous
  Country: FR (occurrence: FR)
  Receive Date: 20160718
  Receipt Date: 20160718
  Transmission Date: 20161109
  Serious: Yes (Life-Threatening, Hospitalization)
  Sender: FDA-Public Use
  Company Number: FR-PFIZER INC-2016335240

PATIENT
  Age: 73 Year
  Sex: Female
  Weight: 53 kg

DRUGS (3)
  1. SUTENT [Suspect]
     Active Substance: SUNITINIB MALATE
     Indication: CLEAR CELL RENAL CELL CARCINOMA
     Dosage: 50 MG, DAILY, 4 WEEKS ON 2 WEEKS OFF
     Route: 048
     Dates: start: 20160410, end: 20160606
  2. EFFEXOR [Concomitant]
     Active Substance: VENLAFAXINE HYDROCHLORIDE
     Dosage: UNK
     Dates: end: 201606
  3. NOCTAMIDE [Concomitant]
     Active Substance: LORMETAZEPAM
     Dosage: UNK
     Dates: end: 201606

REACTIONS (2)
  - Cardiogenic shock [Recovered/Resolved]
  - Thrombocytopenia [Recovered/Resolved]

NARRATIVE: CASE EVENT DATE: 20160607
